FAERS Safety Report 5010508-6 (Version None)
Quarter: 2006Q2

REPORT INFORMATION
  Report Type: 
  Country: None (occurrence: None)
  Receive Date: 20060525
  Receipt Date: 20050906
  Transmission Date: 20061013
  Serious: No
  Sender: FDA-Public Use
  Company Number: US-GLAXOSMITHKLINE-A0573103A

PATIENT
  Age: 32 Year
  Sex: Female

DRUGS (2)
  1. BACTROBAN [Suspect]
     Route: 045
     Dates: start: 20030101, end: 20030101
  2. NO CONCURRENT MEDICATION [Concomitant]

REACTIONS (6)
  - DYSPNOEA [None]
  - NASAL OEDEMA [None]
  - OBSTRUCTIVE AIRWAYS DISORDER [None]
  - SCAR [None]
  - SENSATION OF HEAVINESS [None]
  - SWELLING FACE [None]
